FAERS Safety Report 19004897 (Version 1)
Quarter: 2021Q1

REPORT INFORMATION
  Report Type: Spontaneous
  Country: GB (occurrence: GB)
  Receive Date: 20210312
  Receipt Date: 20210312
  Transmission Date: 20210420
  Serious: Yes (Other)
  Sender: FDA-Public Use
  Company Number: GB-TEVA-2021-GB-1886935

PATIENT
  Age: 69 Year
  Sex: Female
  Weight: 71 kg

DRUGS (4)
  1. DOXAZOSIN [Suspect]
     Active Substance: DOXAZOSIN MESYLATE
     Dosage: 1 MILLIGRAM DAILY;
     Dates: start: 20210216
  2. LOSARTAN. [Concomitant]
     Active Substance: LOSARTAN
     Dosage: 1 DOSAGE FORMS DAILY;
     Dates: start: 20200925
  3. SIMVASTATIN. [Concomitant]
     Active Substance: SIMVASTATIN
     Dosage: 1 DOSAGE FORMS DAILY; NIGHT
     Dates: start: 20200925
  4. HYLO?FORTE [Concomitant]
     Active Substance: HYALURONATE SODIUM
     Dosage: 1 GTT TO THE AFFECTED EYE(S)
     Dates: start: 20210222

REACTIONS (1)
  - Malignant hypertension [Recovering/Resolving]

NARRATIVE: CASE EVENT DATE: 20210224
